FAERS Safety Report 22874087 (Version 4)
Quarter: 2023Q4

REPORT INFORMATION
  Report Type: Report from Study
  Country: IE (occurrence: IE)
  Receive Date: 20230828
  Receipt Date: 20231027
  Transmission Date: 20240110
  Serious: Yes (Hospitalization)
  Sender: FDA-Public Use
  Company Number: IE-002147023-NVSC2023IE184758

PATIENT
  Sex: Male
  Weight: 80.4 kg

DRUGS (2)
  1. HYDROXYCHLOROQUINE [Suspect]
     Active Substance: HYDROXYCHLOROQUINE
     Indication: Pancreatic carcinoma metastatic
     Dosage: 600 MG, BID
     Route: 048
     Dates: start: 20230808, end: 20230820
  2. MEKINIST [Suspect]
     Active Substance: TRAMETINIB DIMETHYL SULFOXIDE
     Indication: Pancreatic carcinoma metastatic
     Dosage: 2 MG, QD
     Route: 048
     Dates: start: 20230808, end: 20230820

REACTIONS (2)
  - Pyrexia [Not Recovered/Not Resolved]
  - Infection [Recovered/Resolved]

NARRATIVE: CASE EVENT DATE: 20230821
